FAERS Safety Report 16006929 (Version 1)
Quarter: 2019Q1

REPORT INFORMATION
  Report Type: Spontaneous
  Country: US (occurrence: US)
  Receive Date: 20190226
  Receipt Date: 20190226
  Transmission Date: 20190418
  Serious: Yes (Hospitalization, Other)
  Sender: FDA-Public Use
  Company Number: US-PFIZER INC-2019073545

PATIENT
  Age: 53 Year
  Sex: Male

DRUGS (2)
  1. DILANTIN [Suspect]
     Active Substance: PHENYTOIN
     Dosage: 50 MG, AS NEEDED (1 (ONE) TABLET BY MOUTH EVERY EIGHT HOURS AS NEEDED)
     Route: 048
  2. DILANTIN [Suspect]
     Active Substance: PHENYTOIN
     Dosage: 100 MG, AS NEEDED (1 (ONE) CAPSULE BY MOUTH EVERY EIGHT HOURS AS NEEDED)
     Route: 048

REACTIONS (2)
  - Seizure [Unknown]
  - Product prescribing error [Unknown]
